FAERS Safety Report 4821423-2 (Version None)
Quarter: 2005Q4

REPORT INFORMATION
  Report Type: 
  Country: None (occurrence: None)
  Receive Date: 20051103
  Receipt Date: 20051020
  Transmission Date: 20060501
  Serious: Yes (Life-Threatening)
  Sender: FDA-Public Use
  Company Number: 200510455BYL

PATIENT
  Age: 69 Year
  Sex: Female
  Weight: 56 kg

DRUGS (3)
  1. ASPIRIN [Suspect]
     Indication: ANGINA PECTORIS
     Dosage: 100 MG, QD, ORAL
     Route: 048
     Dates: start: 20040101, end: 20040428
  2. NU-LOTAN [Concomitant]
  3. MUCOSTA [Concomitant]

REACTIONS (2)
  - APLASIA PURE RED CELL [None]
  - LIVER DISORDER [None]
